FAERS Safety Report 5815020-X (Version None)
Quarter: 2008Q3

REPORT INFORMATION
  Report Type: 
  Country: None (occurrence: None)
  Receive Date: 20080718
  Receipt Date: 20080714
  Transmission Date: 20090109
  Serious: Yes (Life-Threatening, Hospitalization, Other)
  Sender: FDA-Public Use
  Company Number: B0522963A

PATIENT
  Age: 42 Year
  Sex: Female

DRUGS (20)
  1. FLOLAN [Suspect]
     Indication: PULMONARY HYPERTENSION
     Route: 042
     Dates: start: 20020605
  2. ALOSITOL [Concomitant]
     Route: 048
  3. NORVASC [Concomitant]
     Route: 048
  4. LOXONIN [Concomitant]
     Route: 065
  5. WARFARIN POTASSIUM [Concomitant]
     Route: 048
  6. FUROSEMIDE [Concomitant]
     Route: 048
  7. SPIRONOLACTONE [Concomitant]
     Route: 048
  8. ASPIRIN [Concomitant]
     Route: 048
  9. TORSEMIDE [Concomitant]
     Route: 048
  10. BERIZYM [Concomitant]
     Route: 048
  11. MAGNESIUM OXIDE [Concomitant]
     Route: 048
  12. MYSLEE [Concomitant]
     Route: 048
  13. GASTER [Concomitant]
     Route: 048
  14. UNASYN [Concomitant]
     Route: 048
  15. CRAVIT [Concomitant]
     Route: 048
  16. MEDICON [Concomitant]
     Route: 048
  17. BROCIN CODEINE [Concomitant]
     Route: 048
  18. UNASYN [Concomitant]
     Route: 042
  19. CEFAMEZIN [Concomitant]
  20. MEROPEN [Concomitant]
     Route: 042

REACTIONS (8)
  - CARDIAC FAILURE [None]
  - DEVICE CONNECTION ISSUE [None]
  - HAEMOPTYSIS [None]
  - HEPATIC FUNCTION ABNORMAL [None]
  - PALLOR [None]
  - PERIPHERAL COLDNESS [None]
  - SEPSIS [None]
  - THERAPEUTIC RESPONSE DECREASED [None]
